FAERS Safety Report 10198762 (Version 3)
Quarter: 2014Q2

REPORT INFORMATION
  Report Type: Report from Study
  Country: US (occurrence: US)
  Receive Date: 20140527
  Receipt Date: 20140625
  Transmission Date: 20141212
  Serious: Yes (Hospitalization, Other)
  Sender: FDA-Public Use
  Company Number: US-ABBVIE-14P-163-1238182-00

PATIENT
  Age: 52 Year
  Sex: Female

DRUGS (11)
  1. HUMIRA [Suspect]
     Indication: CROHN^S DISEASE
     Dosage: LOADING DOSE
     Dates: start: 20140319, end: 20140319
  2. HUMIRA [Suspect]
     Dates: start: 20140402, end: 20140402
  3. HUMIRA [Suspect]
     Dates: start: 20140515, end: 20140515
  4. HUMIRA [Suspect]
     Dates: start: 20140529
  5. AMBIEN [Concomitant]
     Indication: INSOMNIA
     Dosage: AT BEDTIME
  6. PRILOSEC [Concomitant]
     Indication: DYSPEPSIA
  7. SYNTHROID [Concomitant]
     Indication: HYPOTHYROIDISM
  8. KLONOPIN [Concomitant]
     Indication: ANXIETY
  9. VALDOT PATCH [Concomitant]
     Indication: HOT FLUSH
     Route: 062
  10. PREDNISONE [Concomitant]
     Indication: PRODUCT USED FOR UNKNOWN INDICATION
     Dosage: WEANING OFF
  11. PREDNISONE [Concomitant]
     Dosage: WEANS BY 2.5 MG WEEKLY

REACTIONS (8)
  - Intestinal stenosis [Recovered/Resolved]
  - Small intestinal obstruction [Recovering/Resolving]
  - Intestinal obstruction [Unknown]
  - Cellulitis [Recovering/Resolving]
  - Crohn^s disease [Recovering/Resolving]
  - Scratch [Recovering/Resolving]
  - Urinary tract infection [Recovered/Resolved]
  - Drug dose omission [Unknown]
